FAERS Safety Report 7759634-9 (Version None)
Quarter: 2011Q3

REPORT INFORMATION
  Report Type: 
  Country: None (occurrence: None)
  Receive Date: 20110919
  Receipt Date: 20110906
  Transmission Date: 20111222
  Serious: Yes (Hospitalization)
  Sender: FDA-Public Use
  Company Number: US-JNJFOC-20110904735

PATIENT
  Sex: Male
  Weight: 38.6 kg

DRUGS (4)
  1. AZITHROMYCIN [Suspect]
     Indication: RESPIRATORY TRACT INFECTION
  2. TYLENOL-500 [Suspect]
     Indication: PAIN
     Dates: start: 20030320
  3. AUGMENTIN '125' [Suspect]
     Indication: RESPIRATORY TRACT INFECTION
  4. TYLENOL-500 [Suspect]
     Dates: start: 20030320

REACTIONS (1)
  - STEVENS-JOHNSON SYNDROME [None]
